FAERS Safety Report 6788151-8 (Version None)
Quarter: 2010Q2

REPORT INFORMATION
  Report Type: 
  Country: None (occurrence: None)
  Receive Date: 20100623
  Receipt Date: 20080204
  Transmission Date: 20101027
  Serious: No
  Sender: FDA-Public Use
  Company Number: US-PFIZER INC-2008008760

PATIENT
  Sex: Female
  Weight: 61 kg

DRUGS (1)
  1. DEPO-PROVERA SUSPENSION/INJ [Suspect]
     Indication: CONTRACEPTION
     Dosage: LAST INJECTION
     Dates: start: 20070201, end: 20070201

REACTIONS (4)
  - DRUG INEFFECTIVE [None]
  - INFERTILITY FEMALE [None]
  - METRORRHAGIA [None]
  - UNINTENDED PREGNANCY [None]
